FAERS Safety Report 14346611 (Version 1)
Quarter: 2018Q1

REPORT INFORMATION
  Report Type: Spontaneous
  Country: JP (occurrence: JP)
  Receive Date: 20180103
  Receipt Date: 20180103
  Transmission Date: 20180509
  Serious: Yes (Other)
  Sender: FDA-Public Use
  Company Number: JP-PFIZER INC-2017554104

PATIENT
  Sex: Female

DRUGS (2)
  1. RHEUMATREX [Suspect]
     Active Substance: METHOTREXATE SODIUM
     Indication: RHEUMATOID ARTHRITIS
     Dosage: 6 DF, WEEKLY (IN THREE DIVIDED DOSES)
     Route: 048
     Dates: end: 2017
  2. RHEUMATREX [Suspect]
     Active Substance: METHOTREXATE SODIUM
     Dosage: 3 DF, WEEKLY
     Route: 048
     Dates: start: 2017, end: 2017

REACTIONS (2)
  - Neoplasm malignant [Recovering/Resolving]
  - Metastasis [Recovering/Resolving]
